FAERS Safety Report 16260453 (Version 1)
Quarter: 2019Q2

REPORT INFORMATION
  Report Type: Spontaneous
  Country: US (occurrence: US)
  Receive Date: 20190430
  Receipt Date: 20190430
  Transmission Date: 20190711
  Serious: Yes (Hospitalization)
  Sender: FDA-Public Use
  Company Number: None

PATIENT
  Age: 67 Year
  Sex: Female

DRUGS (2)
  1. N/A [Concomitant]
     Active Substance: UNSPECIFIED INGREDIENT
  2. NEULASTA [Suspect]
     Active Substance: PEGFILGRASTIM
     Indication: AGRANULOCYTOSIS
     Dosage: ?          OTHER FREQUENCY:1 DAY AFTER CHEMO;?
     Route: 058
     Dates: start: 20190314

REACTIONS (3)
  - Dyspnoea [None]
  - Haemoptysis [None]
  - Tracheal neoplasm [None]

NARRATIVE: CASE EVENT DATE: 20190418
